FAERS Safety Report 7032377-5 (Version None)
Quarter: 2010Q4

REPORT INFORMATION
  Report Type: 
  Country: None (occurrence: None)
  Receive Date: 20101005
  Receipt Date: 20100921
  Transmission Date: 20110411
  Serious: Yes (Other)
  Sender: FDA-Public Use
  Company Number: DK-ACCORD-006184

PATIENT
  Age: 52 Year
  Sex: Female

DRUGS (7)
  1. PACLITAXEL [Suspect]
     Indication: OVARIAN CANCER
     Dosage: 175.00-MG/M2- / INTRAVENOUS
     Route: 042
  2. CARBOPLATIN [Concomitant]
  3. FENTANYL-100 [Concomitant]
  4. THIOPENTAL SODIUM [Concomitant]
  5. ROCURONIUM BROMIDE [Concomitant]
  6. PROPOFOL [Concomitant]
  7. ALFENTANIL [Concomitant]

REACTIONS (10)
  - DRUG TOXICITY [None]
  - FACE OEDEMA [None]
  - GENERAL PHYSICAL HEALTH DETERIORATION [None]
  - HYPERSENSITIVITY [None]
  - LOCALISED OEDEMA [None]
  - MOTOR DYSFUNCTION [None]
  - OEDEMA PERIPHERAL [None]
  - PARAESTHESIA [None]
  - POST PROCEDURAL COMPLICATION [None]
  - SCLERODERMA [None]
